FAERS Safety Report 17430159 (Version 1)
Quarter: 2020Q1

REPORT INFORMATION
  Report Type: Spontaneous
  Country: US (occurrence: US)
  Receive Date: 20200203
  Receipt Date: 20200203
  Transmission Date: 20200409
  Serious: Yes (Other)
  Sender: FDA-Public Use
  Company Number: None

PATIENT
  Age: 72 Year
  Sex: Male
  Weight: 81.65 kg

DRUGS (1)
  1. TADALAFIL 5MG TABLET [Suspect]
     Active Substance: TADALAFIL
     Indication: BENIGN PROSTATIC HYPERPLASIA
     Dosage: ?          QUANTITY:1;OTHER FREQUENCY:1;?
     Route: 048
     Dates: end: 20191120

REACTIONS (3)
  - Oral discomfort [None]
  - Tongue discomfort [None]
  - Drug ineffective [None]

NARRATIVE: CASE EVENT DATE: 20191119
